FAERS Safety Report 9052082 (Version 2)
Quarter: 2013Q1

REPORT INFORMATION
  Report Type: Spontaneous
  Country: US (occurrence: US)
  Receive Date: 20130206
  Receipt Date: 20130307
  Transmission Date: 20140127
  Serious: Yes (Hospitalization)
  Sender: FDA-Public Use
  Company Number: US-BIOGENIDEC-2013BI010744

PATIENT
  Age: 30 Year
  Sex: Female

DRUGS (3)
  1. TYSABRI [Suspect]
     Indication: MULTIPLE SCLEROSIS
     Route: 042
     Dates: start: 20090309
  2. SEROQUEL [Concomitant]
  3. ZOLOFT [Concomitant]

REACTIONS (4)
  - Pneumonia [Recovered/Resolved]
  - Panic attack [Unknown]
  - Major depression [Unknown]
  - Anxiety disorder [Unknown]
